FAERS Safety Report 7961689-3 (Version None)
Quarter: 2011Q4

REPORT INFORMATION
  Report Type: 
  Country: None (occurrence: None)
  Receive Date: 20111207
  Receipt Date: 20111201
  Transmission Date: 20120403
  Serious: Yes (Other)
  Sender: FDA-Public Use
  Company Number: US-AMGEN-USASP2011060142

PATIENT
  Age: 86 Year
  Sex: Female

DRUGS (1)
  1. NPLATE [Suspect]
     Indication: IDIOPATHIC THROMBOCYTOPENIC PURPURA

REACTIONS (4)
  - BONE MARROW RETICULIN FIBROSIS [None]
  - THROMBOCYTOPENIA [None]
  - ANAEMIA [None]
  - ACUTE LEUKAEMIA [None]
